FAERS Safety Report 7788147-3 (Version None)
Quarter: 2011Q3

REPORT INFORMATION
  Report Type: 
  Country: None (occurrence: None)
  Receive Date: 20110929
  Receipt Date: 20110929
  Transmission Date: 20111222
  Serious: No
  Sender: FDA-Public Use
  Company Number: None

PATIENT
  Sex: Female

DRUGS (1)
  1. L'OREAL SUBLIME BRONZE SELF-TANNING LOTION SPF 15 [Suspect]

REACTIONS (5)
  - RASH GENERALISED [None]
  - BLISTER [None]
  - PRODUCT ODOUR ABNORMAL [None]
  - PRODUCT TAMPERING [None]
  - EYE IRRITATION [None]
